FAERS Safety Report 20088046 (Version 1)
Quarter: 2021Q4

REPORT INFORMATION
  Report Type: Spontaneous
  Country: US (occurrence: US)
  Receive Date: 20211118
  Receipt Date: 20211118
  Transmission Date: 20220303
  Serious: Yes (Death)
  Sender: FDA-Public Use
  Company Number: US-LUNDBECK-DKLU3041141

PATIENT
  Age: 93 Year
  Sex: Male

DRUGS (1)
  1. NORTHERA [Suspect]
     Active Substance: DROXIDOPA
     Indication: Parkinson^s disease
     Route: 065
     Dates: start: 20210113

REACTIONS (1)
  - Death [Fatal]

NARRATIVE: CASE EVENT DATE: 20211107
